FAERS Safety Report 4566811-7 (Version None)
Quarter: 2005Q1

REPORT INFORMATION
  Report Type: 
  Country: None (occurrence: None)
  Receive Date: 20050201
  Receipt Date: 20020102
  Transmission Date: 20050727
  Serious: Yes (Other)
  Sender: FDA-Public Use
  Company Number: US-BRISTOL-MYERS SQUIBB COMPANY-11826179

PATIENT
  Sex: Female

DRUGS (7)
  1. STADOL [Suspect]
     Route: 045
  2. VICODIN [Concomitant]
     Dosage: DOSING: 5/500 MG
  3. PERCODAN [Concomitant]
  4. PERCOCET TABS 5 MG/325 MG [Concomitant]
     Dosage: DOSING: 5/325 MG
  5. DARVOCET-N 100 [Concomitant]
  6. NORVASC [Concomitant]
  7. LORCET-HD [Concomitant]

REACTIONS (1)
  - DEPENDENCE [None]
